FAERS Safety Report 5669623-6 (Version None)
Quarter: 2008Q1

REPORT INFORMATION
  Report Type: 
  Country: None (occurrence: None)
  Receive Date: 20080317
  Receipt Date: 20080314
  Transmission Date: 20080703
  Serious: Yes (Other)
  Sender: FDA-Public Use
  Company Number: A0715383A

PATIENT
  Age: 33 Year
  Sex: Female

DRUGS (1)
  1. ALLI [Suspect]
     Route: 048

REACTIONS (3)
  - ARTHRALGIA [None]
  - FIBULA FRACTURE [None]
  - JOINT SWELLING [None]
